FAERS Safety Report 5599710-2 (Version None)
Quarter: 2008Q1

REPORT INFORMATION
  Report Type: 
  Country: None (occurrence: None)
  Receive Date: 20080123
  Receipt Date: 20080118
  Transmission Date: 20080703
  Serious: Yes (Other)
  Sender: FDA-Public Use
  Company Number: PHRM2008FR00652

PATIENT
  Age: 57 Year
  Sex: Female

DRUGS (4)
  1. EFFEXOR [Concomitant]
     Dates: start: 20030101
  2. ALDACTONE [Concomitant]
     Dates: start: 20030101
  3. DAFLON [Concomitant]
     Dates: start: 20030101
  4. TRILEPTAL [Suspect]
     Indication: CERVICAL ROOT PAIN
     Dosage: 75 MG, BID
     Route: 048
     Dates: start: 20080101

REACTIONS (5)
  - BLISTER [None]
  - BODY TEMPERATURE INCREASED [None]
  - CHILLS [None]
  - PRURITUS [None]
  - RASH [None]
